FAERS Safety Report 7190590-0 (Version None)
Quarter: 2010Q4

REPORT INFORMATION
  Report Type: 
  Country: None (occurrence: None)
  Receive Date: 20101223
  Receipt Date: 20101220
  Transmission Date: 20110411
  Serious: Yes (Hospitalization, Other)
  Sender: FDA-Public Use
  Company Number: US-B.I. PHARMACEUTICALS,INC./RIDGEFIELD-2010-BP-14730BP

PATIENT
  Age: 73 Year
  Sex: Female

DRUGS (4)
  1. PRADAXA [Suspect]
     Indication: ATRIAL FIBRILLATION
     Dosage: 300 MG
     Route: 048
     Dates: start: 20101208, end: 20101210
  2. PRADAXA [Suspect]
     Dosage: 300 MG
     Route: 048
     Dates: start: 20101216
  3. HYZAAR [Concomitant]
     Indication: HYPERTENSION
     Route: 048
  4. RYTHMOL [Concomitant]
     Indication: CARDIAC DISORDER
     Dosage: 300 MG
     Route: 048

REACTIONS (2)
  - GALLBLADDER DISORDER [None]
  - PANCREATITIS [None]
